FAERS Safety Report 7971192-2 (Version None)
Quarter: 2011Q4

REPORT INFORMATION
  Report Type: 
  Country: None (occurrence: None)
  Receive Date: 20111212
  Receipt Date: 20111205
  Transmission Date: 20120403
  Serious: Yes (Hospitalization)
  Sender: FDA-Public Use
  Company Number: PHHY2011IT106136

PATIENT
  Age: 36 Year
  Sex: Male

DRUGS (1)
  1. AMOXICILLIN AND CLAVULANATE POTASSIUM [Suspect]
     Indication: ANTIBIOTIC PROPHYLAXIS
     Route: 042
     Dates: start: 20111128, end: 20111128

REACTIONS (7)
  - BRONCHOSPASM [None]
  - OXYGEN SATURATION ABNORMAL [None]
  - URTICARIA [None]
  - DIARRHOEA [None]
  - TACHYCARDIA [None]
  - CONJUNCTIVAL HYPERAEMIA [None]
  - HYPOTENSION [None]
